FAERS Safety Report 15745905 (Version 1)
Quarter: 2018Q4

REPORT INFORMATION
  Report Type: Spontaneous
  Country: US (occurrence: US)
  Receive Date: 20181220
  Receipt Date: 20181220
  Transmission Date: 20190205
  Serious: Yes (Hospitalization)
  Sender: FDA-Public Use
  Company Number: US-BAYER-2018-237130

PATIENT
  Age: 41 Year
  Sex: Female

DRUGS (1)
  1. BETASERON [Suspect]
     Active Substance: INTERFERON BETA-1B
     Dosage: UNK UNK, QOD

REACTIONS (4)
  - Pain [None]
  - Multiple sclerosis relapse [None]
  - Inappropriate schedule of product administration [None]
  - Fall [None]

NARRATIVE: CASE EVENT DATE: 201812
